FAERS Safety Report 12596538 (Version 1)
Quarter: 2016Q3

REPORT INFORMATION
  Report Type: Spontaneous
  Country: GB (occurrence: GB)
  Receive Date: 20160727
  Receipt Date: 20160727
  Transmission Date: 20161109
  Serious: Yes (Other)
  Sender: FDA-Public Use
  Company Number: GB-TEVA-678308ACC

PATIENT
  Age: 35 Year
  Sex: Female
  Weight: 73 kg

DRUGS (3)
  1. ERYTHROMYCIN. [Concomitant]
     Active Substance: ERYTHROMYCIN
     Dosage: 8 DOSAGE FORMS DAILY;
     Dates: start: 20160706
  2. AMOXICILLIN. [Suspect]
     Active Substance: AMOXICILLIN
     Dates: start: 20160706
  3. AMITRIPTYLINE HYDROCHLORIDE. [Concomitant]
     Active Substance: AMITRIPTYLINE HYDROCHLORIDE
     Dosage: 1 DOSAGE FORMS DAILY; AT NIGHT
     Dates: start: 20151216

REACTIONS (2)
  - Rash [Recovered/Resolved]
  - Swelling [Unknown]

NARRATIVE: CASE EVENT DATE: 20160706
